FAERS Safety Report 4430507-2 (Version None)
Quarter: 2004Q3

REPORT INFORMATION
  Report Type: 
  Country: None (occurrence: None)
  Receive Date: 20040721
  Receipt Date: 20040322
  Transmission Date: 20050211
  Serious: No
  Sender: FDA-Public Use
  Company Number: 2004UW05812

PATIENT
  Age: 60 Year
  Sex: Female

DRUGS (1)
  1. PRILOSEC OTC [Suspect]
     Indication: GASTROOESOPHAGEAL REFLUX DISEASE
     Dosage: 1 QD PO
     Route: 048
     Dates: start: 20040306, end: 20040319

REACTIONS (5)
  - CHROMATURIA [None]
  - DIARRHOEA [None]
  - JAUNDICE [None]
  - PRURITUS GENERALISED [None]
  - WEIGHT DECREASED [None]
